FAERS Safety Report 6274460-8 (Version None)
Quarter: 2009Q3

REPORT INFORMATION
  Report Type: 
  Country: None (occurrence: None)
  Receive Date: 20090720
  Receipt Date: 20090710
  Transmission Date: 20100115
  Serious: Yes (Other)
  Sender: FDA-Public Use
  Company Number: PHHY2009DE28880

PATIENT
  Sex: Female

DRUGS (1)
  1. RASILEZ [Suspect]
     Indication: HYPERTENSION
     Dosage: 300 MG, DAILY
     Dates: start: 20090602

REACTIONS (2)
  - ATRIAL FIBRILLATION [None]
  - EXTRASYSTOLES [None]
